FAERS Safety Report 8270788-0 (Version None)
Quarter: 2012Q1

REPORT INFORMATION
  Report Type: 
  Country: None (occurrence: None)
  Receive Date: 20120308
  Receipt Date: 20120201
  Transmission Date: 20120608
  Serious: No
  Sender: FDA-Public Use
  Company Number: PHEH2012US002992

PATIENT
  Sex: Female

DRUGS (2)
  1. FANAPT [Suspect]
     Dosage: 12 MG, BID, ORAL
     Route: 048
     Dates: start: 20110801, end: 20120201
  2. ABILIFY [Concomitant]

REACTIONS (1)
  - BLOOD PROLACTIN INCREASED [None]
